FAERS Safety Report 7823554-1 (Version None)
Quarter: 2011Q4

REPORT INFORMATION
  Report Type: 
  Country: None (occurrence: None)
  Receive Date: 20111019
  Receipt Date: 20111013
  Transmission Date: 20120403
  Serious: Yes (Hospitalization, Other)
  Sender: FDA-Public Use
  Company Number: US-AMGEN-USASP2011052933

PATIENT
  Age: 58 Year
  Sex: Male

DRUGS (2)
  1. AZACITIDINE [Concomitant]
     Indication: MYELODYSPLASTIC SYNDROME
  2. NEUPOGEN [Suspect]
     Indication: MYELODYSPLASTIC SYNDROME
     Dosage: UNK

REACTIONS (2)
  - FEBRILE NEUTROPENIA [None]
  - BLOOD CREATININE INCREASED [None]
